FAERS Safety Report 16698021 (Version 2)
Quarter: 2019Q4

REPORT INFORMATION
  Report Type: Report from Study
  Country: CA (occurrence: CA)
  Receive Date: 20190813
  Receipt Date: 20191024
  Transmission Date: 20200122
  Serious: Yes (Other)
  Sender: FDA-Public Use
  Company Number: CA-BRISTOL-MYERS SQUIBB COMPANY-BMS-2019-045692

PATIENT
  Age: 70 Year
  Sex: Female

DRUGS (1)
  1. ABATACEPT [Suspect]
     Active Substance: ABATACEPT
     Indication: PRODUCT USED FOR UNKNOWN INDICATION
     Dosage: 125 MILLIGRAM, QWK
     Route: 058
     Dates: start: 20180508

REACTIONS (13)
  - Nasal congestion [Unknown]
  - Dyspnoea [Unknown]
  - Sputum discoloured [Unknown]
  - Rheumatoid arthritis [Unknown]
  - Cataract [Unknown]
  - Arthritis [Unknown]
  - Nasal polyps [Unknown]
  - Pneumonia [Unknown]
  - Decreased appetite [Unknown]
  - Infection [Unknown]
  - Sinusitis [Unknown]
  - Weight decreased [Unknown]
  - Rhinorrhoea [Unknown]

NARRATIVE: CASE EVENT DATE: 201812
